FAERS Safety Report 13195790 (Version 1)
Quarter: 2017Q1

REPORT INFORMATION
  Report Type: Spontaneous
  Country: US (occurrence: US)
  Receive Date: 20170207
  Receipt Date: 20170207
  Transmission Date: 20170428
  Serious: Yes (Hospitalization)
  Sender: FDA-Public Use
  Company Number: None

PATIENT
  Age: 67 Year
  Sex: Female
  Weight: 72 kg

DRUGS (17)
  1. LORATADINE. [Concomitant]
     Active Substance: LORATADINE
  2. LORAZEPAM. [Concomitant]
     Active Substance: LORAZEPAM
  3. TRASTUZUMAB [Suspect]
     Active Substance: TRASTUZUMAB
     Indication: CHEMOTHERAPY
     Dosage: OTHER FREQUENCY:Q CYCLE CHEMO;?
     Route: 042
  4. TAXOTERE [Concomitant]
     Active Substance: DOCETAXEL
  5. ASPIRIN. [Concomitant]
     Active Substance: ASPIRIN
  6. PROCHLORPERAZINE. [Concomitant]
     Active Substance: PROCHLORPERAZINE
  7. HYDROCHLOROTHIAZIDE. [Concomitant]
     Active Substance: HYDROCHLOROTHIAZIDE
  8. CARBOPLATIN. [Concomitant]
     Active Substance: CARBOPLATIN
  9. DEXAMETHASONE. [Concomitant]
     Active Substance: DEXAMETHASONE
  10. ONDANSETRON [Concomitant]
     Active Substance: ONDANSETRON
  11. RAMIPRIL. [Concomitant]
     Active Substance: RAMIPRIL
  12. PERJETA [Concomitant]
     Active Substance: PERTUZUMAB
  13. PERTUZUMAB [Suspect]
     Active Substance: PERTUZUMAB
     Indication: CHEMOTHERAPY
  14. DOXYCYCLINE. [Concomitant]
     Active Substance: DOXYCYCLINE
  15. HERCEPTIN [Concomitant]
     Active Substance: TRASTUZUMAB
  16. PEGFILGRASTIM [Suspect]
     Active Substance: PEGFILGRASTIM
     Indication: SUPPORTIVE CARE
     Dosage: OTHER FREQUENCY:Q CYCLE CHEMO;?
     Route: 058
  17. PEGFILGRASTIM [Concomitant]
     Active Substance: PEGFILGRASTIM

REACTIONS (3)
  - Limb injury [None]
  - Pyoderma gangrenosum [None]
  - Fall [None]

NARRATIVE: CASE EVENT DATE: 20170125
